FAERS Safety Report 23724006 (Version 1)
Quarter: 2024Q2

REPORT INFORMATION
  Report Type: Spontaneous
  Country: CN (occurrence: CN)
  Receive Date: 20240409
  Receipt Date: 20240409
  Transmission Date: 20240715
  Serious: Yes (Other)
  Sender: FDA-Public Use
  Company Number: CN-WOODWARD-2024-CN-000107

PATIENT
  Age: 59 Year
  Sex: Female

DRUGS (4)
  1. RABEPRAZOLE SODIUM [Suspect]
     Active Substance: RABEPRAZOLE SODIUM
     Indication: Helicobacter infection
     Dosage: 2.0 DOSAGE FORM (1 DOSAGE FORM, 1 IN 12 HOUR)
     Route: 048
     Dates: start: 20240319, end: 20240324
  2. FURAZOLIDONE [Suspect]
     Active Substance: FURAZOLIDONE
     Dosage: 2.0 DOSAGE FORM (1 DOSAGE FORM, 1 IN 12 HOUR)
     Route: 048
     Dates: start: 20240319, end: 20240324
  3. BISMUTH [Suspect]
     Active Substance: BISMUTH
     Dosage: 4.0 DOSAGE FORM (2 DOSAGE FORM, 1 IN 12 HOUR)
     Route: 048
     Dates: start: 20240319, end: 20240324
  4. AMOXICILLIN [Suspect]
     Active Substance: AMOXICILLIN
     Dosage: 8.0 DOSAGE FORM (4 DOSAGE FORM, 1 IN 12 HOUR)
     Route: 048
     Dates: start: 20240319, end: 20240324

REACTIONS (2)
  - Rash [Recovered/Resolved]
  - Pruritus [Recovered/Resolved]

NARRATIVE: CASE EVENT DATE: 20240325
